FAERS Safety Report 5912305-3 (Version None)
Quarter: 2008Q4

REPORT INFORMATION
  Report Type: 
  Country: None (occurrence: None)
  Receive Date: 20081008
  Receipt Date: 20080929
  Transmission Date: 20090506
  Serious: Yes (Other)
  Sender: FDA-Public Use
  Company Number: HU-ROCHE-588681

PATIENT
  Age: 78 Year
  Sex: Female

DRUGS (2)
  1. BONIVA [Suspect]
     Indication: OSTEOPOROSIS
     Route: 048
     Dates: start: 20050101, end: 20050101
  2. DIPYRONE TAB [Concomitant]
     Dosage: ADMINISTERED OCCASIONALLY, DRUG NAME REPORTED AS ALGOPYRIN

REACTIONS (2)
  - GASTRIC HAEMORRHAGE [None]
  - GASTRIC ULCER [None]
